FAERS Safety Report 19167283 (Version 1)
Quarter: 2021Q2

REPORT INFORMATION
  Report Type: Spontaneous
  Country: FR (occurrence: FR)
  Receive Date: 20210422
  Receipt Date: 20210422
  Transmission Date: 20210717
  Serious: Yes (Hospitalization)
  Sender: FDA-Public Use
  Company Number: FR-BAUSCH-BL-2021-013565

PATIENT
  Age: 86 Year
  Sex: Male

DRUGS (11)
  1. ALDACTONE [Concomitant]
     Active Substance: SPIRONOLACTONE
     Indication: PRODUCT USED FOR UNKNOWN INDICATION
     Route: 048
  2. GENTAMICINE [Suspect]
     Active Substance: GENTAMICIN
     Indication: ENDOCARDITIS
     Route: 042
     Dates: start: 20181009, end: 20181012
  3. XARELTO [Concomitant]
     Active Substance: RIVAROXABAN
     Indication: PRODUCT USED FOR UNKNOWN INDICATION
     Route: 048
  4. LEXOMIL [Concomitant]
     Active Substance: BROMAZEPAM
     Indication: PRODUCT USED FOR UNKNOWN INDICATION
     Route: 048
  5. AMIODARONE [Concomitant]
     Active Substance: AMIODARONE
     Indication: PRODUCT USED FOR UNKNOWN INDICATION
     Route: 048
  6. CEFTRIAXONE BASE [Concomitant]
     Active Substance: CEFTRIAXONE
     Indication: PRODUCT USED FOR UNKNOWN INDICATION
     Route: 042
  7. CHIBRO PROSCAR [Concomitant]
     Active Substance: FINASTERIDE
     Indication: PRODUCT USED FOR UNKNOWN INDICATION
     Route: 048
  8. LASILIX [Concomitant]
     Active Substance: FUROSEMIDE
     Indication: PRODUCT USED FOR UNKNOWN INDICATION
     Dosage: BREAKABLE TABLET
     Route: 048
  9. AMOXICILLINE BASE [Suspect]
     Active Substance: AMOXICILLIN
     Indication: ENDOCARDITIS
     Route: 042
     Dates: start: 20181009, end: 20181017
  10. QVAR [Concomitant]
     Active Substance: BECLOMETHASONE DIPROPIONATE
     Indication: PRODUCT USED FOR UNKNOWN INDICATION
     Route: 055
  11. JOSIR L.P. [Concomitant]
     Indication: PRODUCT USED FOR UNKNOWN INDICATION
     Dosage: PROLONGED?RELEASE MICROGRANULES IN HARD CAPSULE
     Route: 048

REACTIONS (2)
  - Crystalluria [Recovering/Resolving]
  - Acute kidney injury [Recovering/Resolving]

NARRATIVE: CASE EVENT DATE: 20181016
